FAERS Safety Report 21967312 (Version 1)
Quarter: 2023Q1

REPORT INFORMATION
  Report Type: Spontaneous
  Country: DE (occurrence: None)
  Receive Date: 20230208
  Receipt Date: 20230208
  Transmission Date: 20230417
  Serious: Yes (Hospitalization, Other)
  Sender: FDA-Public Use
  Company Number: 2023A014598

PATIENT
  Sex: Male
  Weight: 76 kg

DRUGS (21)
  1. IMFINZI [Suspect]
     Active Substance: DURVALUMAB
     Indication: Non-small cell lung cancer
     Route: 042
     Dates: start: 20200315, end: 20210515
  2. ALUMINUM HYDROXIDE\MAGNESIUM HYDROXIDE [Concomitant]
     Active Substance: ALUMINUM HYDROXIDE\MAGNESIUM HYDROXIDE
     Dosage: 4X15 ML (24H) TAKE BETWEEN MEALS
  3. ATORVASTATIN [Concomitant]
     Active Substance: ATORVASTATIN
  4. LAXANS [Concomitant]
     Dosage: 1.0DF AS REQUIRED
  5. AZOPT [Concomitant]
     Active Substance: BRINZOLAMIDE
  6. BUDESONIDE [Concomitant]
     Active Substance: BUDESONIDE
     Route: 055
  7. FRESUBIN [Concomitant]
     Active Substance: AMINO ACIDS\DEXTROSE\ELECTROLYTES NOS\SOYBEAN OIL\VITAMINS
  8. DYNEXIDIN FORTE [Concomitant]
     Dosage: 3X1 APPLICATION (24H)
  9. CODEINE PHOSPHATE [Concomitant]
     Active Substance: CODEINE PHOSPHATE
     Dosage: 2.0DF AS REQUIRED
  10. EDOXABAN TOSYLATE [Concomitant]
     Active Substance: EDOXABAN TOSYLATE
     Indication: Antiplatelet therapy
  11. FORMARTIS [Concomitant]
     Indication: Asthma
     Route: 055
  12. GLYCERIN [Concomitant]
     Active Substance: GLYCERIN
     Dosage: 1.0DF AS REQUIRED
  13. HYDROMORPHONE [Concomitant]
     Active Substance: HYDROMORPHONE
     Indication: Pain
     Dosage: 1.0DF AS REQUIRED
  14. HYDROMORPHONE [Concomitant]
     Active Substance: HYDROMORPHONE
     Indication: Pain
  15. MOVICOL [Concomitant]
     Active Substance: POLYETHYLENE GLYCOL 3350\POTASSIUM CHLORIDE\SODIUM BICARBONATE\SODIUM CHLORIDE
     Indication: Medical diet
  16. RIOPAN [Concomitant]
     Dosage: 4X1 POUCHES (24 H, AS REQUIRED), TAKE BETWEEN MEALS
  17. MAGNESIUM [Concomitant]
     Active Substance: MAGNESIUM
  18. LAXANS [Concomitant]
     Dosage: 15.0DF AS REQUIRED
  19. METAMIZOLE [Concomitant]
     Active Substance: METAMIZOLE
  20. PREDNISOLONE [Concomitant]
     Active Substance: PREDNISOLONE
     Indication: Asthma
  21. TORSEMIDE [Concomitant]
     Active Substance: TORSEMIDE

REACTIONS (3)
  - Pemphigoid [Recovered/Resolved with Sequelae]
  - Toxicity to various agents [Unknown]
  - Scar [Not Recovered/Not Resolved]
